FAERS Safety Report 6215318-X (Version None)
Quarter: 2009Q2

REPORT INFORMATION
  Report Type: 
  Country: None (occurrence: None)
  Receive Date: 20090604
  Receipt Date: 20090602
  Transmission Date: 20091009
  Serious: Yes (Death, Hospitalization, Other)
  Sender: FDA-Public Use
  Company Number: PHHY2009JP18685

PATIENT
  Sex: Male

DRUGS (15)
  1. VOLTAREN [Suspect]
     Indication: NASOPHARYNGITIS
     Dosage: 75 MG DAILY
     Route: 048
     Dates: start: 20090423
  2. VOLTAREN [Suspect]
     Indication: ARTHRITIS
     Dosage: 2 DF/DAY
     Route: 048
     Dates: end: 20090502
  3. MEIACT [Suspect]
     Indication: NASOPHARYNGITIS
     Dosage: 300 MG, UNK
     Route: 048
     Dates: start: 20090423
  4. MEIACT [Suspect]
     Indication: PHARYNGITIS
     Dosage: 3 DF/DAY
     Route: 048
     Dates: end: 20090427
  5. ALLELOCK [Suspect]
     Indication: NASOPHARYNGITIS
     Dosage: 10 MG, UNK
     Route: 048
     Dates: start: 20090423, end: 20090427
  6. ALLELOCK [Suspect]
     Indication: RHINITIS
  7. CYTOTEC [Suspect]
     Indication: NASOPHARYNGITIS
     Dosage: 300 UG
     Route: 048
     Dates: start: 20090423
  8. CYTOTEC [Suspect]
     Indication: GASTRITIS
     Dosage: 3 DF/DAY
     Route: 048
     Dates: end: 20090502
  9. PL [Concomitant]
     Indication: NASOPHARYNGITIS
     Dosage: 3 G, UNK
     Route: 048
     Dates: start: 20090423, end: 20090427
  10. PL [Concomitant]
     Indication: PHARYNGITIS
  11. SELBEX [Concomitant]
     Indication: GASTRITIS
     Dosage: 10 MG, UNK
     Route: 048
     Dates: start: 20090201
  12. MUCOSOLVAN [Concomitant]
     Indication: EMPHYSEMA
     Dosage: 30 MG, UNK
     Route: 048
     Dates: start: 20090201
  13. MUCODYNE [Concomitant]
     Indication: EMPHYSEMA
     Dosage: 1000 MG, UNK
     Route: 048
     Dates: start: 20090201
  14. MICARDIS [Concomitant]
     Indication: HYPERTENSION
     Dosage: 40 MG, UNK
     Route: 048
     Dates: start: 20090201
  15. CONIEL [Concomitant]
     Indication: HYPERTENSION
     Dosage: 4 MG, UNK
     Route: 048
     Dates: start: 20090201

REACTIONS (6)
  - EPISTAXIS [None]
  - HAEMORRHAGIC DISORDER [None]
  - HEPATITIS [None]
  - JAUNDICE [None]
  - OCULAR ICTERUS [None]
  - RENAL FAILURE [None]
